FAERS Safety Report 4295209-4 (Version None)
Quarter: 2004Q1

REPORT INFORMATION
  Report Type: 
  Country: None (occurrence: None)
  Receive Date: 20040212
  Receipt Date: 20040205
  Transmission Date: 20041129
  Serious: Yes (Other)
  Sender: FDA-Public Use
  Company Number: MEDI-0001433

PATIENT
  Age: 24 Month
  Sex: Male
  Weight: 13.4265 kg

DRUGS (7)
  1. SYNAGIS [Suspect]
     Indication: ANTIVIRAL PROPHYLAXIS
     Dosage: 1 IN 30 D, INTRAMUSCULAR
     Route: 030
     Dates: start: 20031106, end: 20031106
  2. SYNAGIS [Suspect]
     Indication: ANTIVIRAL PROPHYLAXIS
     Dosage: 1 IN 30 D, INTRAMUSCULAR
     Route: 030
     Dates: start: 20040102, end: 20040102
  3. SYNAGIS [Suspect]
     Indication: ANTIVIRAL PROPHYLAXIS
     Dosage: 1 IN 30 D, INTRAMUSCULAR
     Route: 030
     Dates: start: 20031204
  4. ALBUTEROL [Concomitant]
  5. SYMMETREL [Concomitant]
  6. FLONASE (FLUTROCASONE PROPIONATE) [Concomitant]
  7. FLOVENT [Concomitant]

REACTIONS (2)
  - CONVULSION [None]
  - PYREXIA [None]
